FAERS Safety Report 4364505-4 (Version None)
Quarter: 2004Q2

REPORT INFORMATION
  Report Type: 
  Country: None (occurrence: None)
  Receive Date: 20040521
  Receipt Date: 20040430
  Transmission Date: 20050107
  Serious: Yes (Other)
  Sender: FDA-Public Use
  Company Number: US-JNJFOC-20040402490

PATIENT
  Age: 61 Year
  Sex: Female
  Weight: 78.0187 kg

DRUGS (8)
  1. LEVAQUIN [Suspect]
     Indication: BRONCHITIS
     Dosage: 500 MG, ORAL
     Route: 048
     Dates: start: 20040219, end: 20040224
  2. LEVAQUIN [Suspect]
     Indication: SINUSITIS
     Dosage: 500 MG, ORAL
     Route: 048
     Dates: start: 20040219, end: 20040224
  3. ADVAIR (SERETIDE MITE) [Concomitant]
  4. ACCOLATE [Concomitant]
  5. ZYRTEC D (CETIRIZINE HYDROCHLORIDE) [Concomitant]
  6. PREVACID [Concomitant]
  7. PREMARIN [Concomitant]
  8. MAGNESIUM (MAGNESIUM) [Concomitant]

REACTIONS (5)
  - ARTHRALGIA [None]
  - FOOT FRACTURE [None]
  - PAIN [None]
  - STRESS FRACTURE [None]
  - TENDONITIS [None]
